FAERS Safety Report 11719268 (Version 2)
Quarter: 2015Q4

REPORT INFORMATION
  Report Type: Spontaneous
  Country: ES (occurrence: ES)
  Receive Date: 20151110
  Receipt Date: 20151118
  Transmission Date: 20160304
  Serious: Yes (Other)
  Sender: FDA-Public Use
  Company Number: ES-PFIZER INC-2015377113

PATIENT
  Age: 57 Year
  Sex: Female

DRUGS (5)
  1. NEURONTIN [Concomitant]
     Active Substance: GABAPENTIN
  2. PRISTIQ EXTENDED RELEASE [Suspect]
     Active Substance: DESVENLAFAXINE SUCCINATE
     Indication: DEPRESSION
     Dosage: 50 MG, 2X/DAY
     Route: 048
     Dates: start: 20150601, end: 20151104
  3. LORAZEPAM. [Concomitant]
     Active Substance: LORAZEPAM
     Dosage: 5 MG, UNK
  4. ACTIQ [Concomitant]
     Active Substance: FENTANYL CITRATE
     Dosage: 400
  5. MST CONTINUS [Concomitant]
     Active Substance: MORPHINE SULFATE
     Dosage: 30

REACTIONS (11)
  - Restlessness [Recovering/Resolving]
  - Asthenia [Recovering/Resolving]
  - Myalgia [Recovering/Resolving]
  - Alopecia [Recovering/Resolving]
  - Drug dependence [Recovering/Resolving]
  - Dizziness [Recovering/Resolving]
  - Tremor [Recovering/Resolving]
  - Nervousness [Recovering/Resolving]
  - Feeling abnormal [Recovering/Resolving]
  - Depressed mood [Recovering/Resolving]
  - Blood pressure decreased [Recovering/Resolving]
